FAERS Safety Report 12648750 (Version 2)
Quarter: 2016Q3

REPORT INFORMATION
  Report Type: Spontaneous
  Country: US (occurrence: US)
  Receive Date: 20160812
  Receipt Date: 20160830
  Transmission Date: 20161109
  Serious: No
  Sender: FDA-Public Use
  Company Number: US-PFIZER INC-2016376102

PATIENT
  Age: 77 Year
  Sex: Male
  Weight: 88.45 kg

DRUGS (14)
  1. PROAIR HFA [Concomitant]
     Active Substance: ALBUTEROL SULFATE
     Indication: ASTHMA
     Dosage: AS NEEDED
  2. CENTRUM SILVER /02363801/ [Concomitant]
     Active Substance: MINERALS\VITAMINS
     Dosage: ONE A DAY
  3. CHONDROITIN [Concomitant]
     Active Substance: CHONDROITIN
     Indication: ARTHROPATHY
     Dosage: 600 MG, UNK
  4. ASPIRIN. [Concomitant]
     Active Substance: ASPIRIN
     Indication: MYOCARDIAL INFARCTION
  5. ADVAIR HFA [Concomitant]
     Active Substance: FLUTICASONE PROPIONATE\SALMETEROL XINAFOATE
     Indication: ASTHMA
     Dosage: TWICE A DAY PUFF
     Route: 055
  6. OXYGEN. [Concomitant]
     Active Substance: OXYGEN
     Dosage: 2L AT NIGHT ONLY
  7. FINASTERIDE. [Concomitant]
     Active Substance: FINASTERIDE
     Indication: PROSTATIC DISORDER
     Dosage: 5MG ONE A DAY
  8. GLUCOSAMINE [Concomitant]
     Active Substance: GLUCOSAMINE
     Indication: ARTHROPATHY
     Dosage: 750 MG, UNK
  9. TAMSULOSIN HCL [Concomitant]
     Active Substance: TAMSULOSIN
     Indication: PROSTATIC DISORDER
     Dosage: 0.4 UNK, UNK
  10. GARLIC. [Concomitant]
     Active Substance: GARLIC
     Indication: DYSPEPSIA
     Dosage: ONE ONCE A DAY
  11. OSCAL CALCIUM [Concomitant]
     Indication: ARTHROPATHY
     Dosage: UNK
  12. FISH OIL [Concomitant]
     Active Substance: FISH OIL
     Dosage: ONE A DAY
  13. LYRICA [Suspect]
     Active Substance: PREGABALIN
     Indication: NEUROPATHY PERIPHERAL
     Dosage: 50MG CAPSULE 2-3 TIMES A DAY BY MOUTH
     Route: 048
     Dates: start: 201607
  14. ASPIRIN. [Concomitant]
     Active Substance: ASPIRIN
     Indication: PROPHYLAXIS
     Dosage: 81MG ONE A DAY

REACTIONS (1)
  - Drug ineffective [Not Recovered/Not Resolved]
